FAERS Safety Report 8984287 (Version 1)
Quarter: 2012Q4

REPORT INFORMATION
  Report Type: Spontaneous
  Country: US (occurrence: None)
  Receive Date: 20121214
  Receipt Date: 20121214
  Transmission Date: 20130627
  Serious: Yes (Other)
  Sender: FDA-Public Use
  Company Number: US-DEXPHARM-20121771

PATIENT
  Age: 11 Year
  Sex: Male

DRUGS (4)
  1. OMEPRAZOLE [Suspect]
     Indication: OSTEOBLASTIC OSTEOSARCOMA
  2. METHOTREXATE [Suspect]
  3. MEGASTROL [Concomitant]
  4. SUCRALFATE [Concomitant]

REACTIONS (2)
  - Drug interaction [None]
  - Drug clearance decreased [None]
